FAERS Safety Report 7444477-6 (Version None)
Quarter: 2011Q2

REPORT INFORMATION
  Report Type: 
  Country: None (occurrence: None)
  Receive Date: 20110421
  Receipt Date: 20110413
  Transmission Date: 20111010
  Serious: Yes (Hospitalization, Other)
  Sender: FDA-Public Use
  Company Number: KV201000250

PATIENT
  Age: 50 Year
  Sex: Female
  Weight: 27.5787 kg

DRUGS (13)
  1. FIORICET [Concomitant]
  2. ISOSORBIDE MONONITRATE [Suspect]
     Indication: PRINZMETAL ANGINA
     Dosage: 30 MG, QD, ORAL
     Route: 048
     Dates: start: 20070926, end: 20081006
  3. ALBUTEROL [Concomitant]
  4. NORVASC /00972401/ (AMLODIPINE) [Concomitant]
  5. NITROGLYCERIN [Concomitant]
  6. ASPIRIN [Concomitant]
  7. AMITRIPTYLINE HCL [Concomitant]
  8. NEXIUM [Concomitant]
  9. TYLENOL /00020001/ (PARACETAMOL) [Concomitant]
  10. SIMVASTATIN [Concomitant]
  11. GABAPENTIN [Concomitant]
  12. ZANTAC /00502802/ (RANITIDINE HYDROCHLORIDE) [Concomitant]
  13. PRO-AIR (PROCATEROL HYDROCHLORIDE) [Concomitant]

REACTIONS (29)
  - DYSPNOEA [None]
  - HEMIPARESIS [None]
  - PAIN [None]
  - LOCAL SWELLING [None]
  - PALPITATIONS [None]
  - HYPOTENSION [None]
  - PARAESTHESIA [None]
  - VITH NERVE DISORDER [None]
  - VISION BLURRED [None]
  - THINKING ABNORMAL [None]
  - HYPERAESTHESIA [None]
  - ANEURYSM [None]
  - VOMITING [None]
  - ARTHRALGIA [None]
  - SPEECH DISORDER [None]
  - PNEUMONIA [None]
  - EYE PAIN [None]
  - MUSCULAR WEAKNESS [None]
  - MASS [None]
  - CONFUSIONAL STATE [None]
  - PRODUCTIVE COUGH [None]
  - VARICOSE VEIN [None]
  - HEADACHE [None]
  - DIZZINESS [None]
  - NAUSEA [None]
  - UPPER RESPIRATORY TRACT INFECTION [None]
  - CHEST PAIN [None]
  - DIPLOPIA [None]
  - HYPOAESTHESIA FACIAL [None]
